FAERS Safety Report 24998568 (Version 2)
Quarter: 2025Q1

REPORT INFORMATION
  Report Type: Spontaneous
  Country: US (occurrence: US)
  Receive Date: 20250222
  Receipt Date: 20250326
  Transmission Date: 20250408
  Serious: No
  Sender: SANOFI AVENTIS
  Company Number: US-SA-2025SA043629

PATIENT
  Age: 60 Year
  Sex: Female

DRUGS (1)
  1. DUPIXENT [Suspect]
     Active Substance: DUPILUMAB
     Indication: Chronic obstructive pulmonary disease
     Dosage: 300 MG, QOW
     Route: 058
     Dates: start: 20241230

REACTIONS (5)
  - Diarrhoea [Not Recovered/Not Resolved]
  - Cough [Unknown]
  - Chest discomfort [Unknown]
  - Weight increased [Unknown]
  - Oxygen therapy [Unknown]

NARRATIVE: CASE EVENT DATE: 20241201
